FAERS Safety Report 4976251-4 (Version None)
Quarter: 2006Q2

REPORT INFORMATION
  Report Type: 
  Country: None (occurrence: None)
  Receive Date: 20060412
  Receipt Date: 20060331
  Transmission Date: 20061013
  Serious: Yes (Death, Hospitalization)
  Sender: FDA-Public Use
  Company Number: 2006-00471

PATIENT
  Age: 66 Year
  Sex: Male
  Weight: 74 kg

DRUGS (10)
  1. VELCADE [Suspect]
     Indication: MULTIPLE MYELOMA
     Dosage: SEE IMAGE
     Route: 042
     Dates: start: 20051020, end: 20051122
  2. VELCADE [Suspect]
     Indication: MULTIPLE MYELOMA
     Dosage: SEE IMAGE
     Route: 042
     Dates: start: 20051122, end: 20051213
  3. ALLOPURINOL [Concomitant]
  4. GRANISETRON (GRANISETRON) [Concomitant]
  5. DEXAMETHASONE [Concomitant]
  6. OMEPRAZOLE [Concomitant]
  7. PAMIDRONATE DISODIUM [Concomitant]
  8. RAMIPRIL [Concomitant]
  9. FUROSEMIDE [Concomitant]
  10. SLOW-K [Concomitant]

REACTIONS (6)
  - BLOOD CALCIUM INCREASED [None]
  - CARDIAC FAILURE CONGESTIVE [None]
  - MALIGNANT NEOPLASM PROGRESSION [None]
  - MONOCLONAL IMMUNOGLOBULIN PRESENT [None]
  - MULTIPLE MYELOMA [None]
  - PULMONARY ARTERIAL PRESSURE INCREASED [None]
